FAERS Safety Report 17508376 (Version 1)
Quarter: 2020Q1

REPORT INFORMATION
  Report Type: Spontaneous
  Country: US (occurrence: US)
  Receive Date: 20200306
  Receipt Date: 20200306
  Transmission Date: 20200409
  Serious: No
  Sender: FDA-Public Use
  Company Number: US-GW PHARMA-202002USGW00808

PATIENT

DRUGS (2)
  1. CLOBAZAM. [Concomitant]
     Active Substance: CLOBAZAM
     Indication: PRODUCT USED FOR UNKNOWN INDICATION
     Dosage: UNK
     Route: 065
  2. EPIDIOLEX [Suspect]
     Active Substance: CANNABIDIOL
     Indication: PRODUCT USED FOR UNKNOWN INDICATION
     Dosage: 4.41 MG/KG/DAY, 130 MILLIGRAM, BID
     Route: 048

REACTIONS (2)
  - Depression [Unknown]
  - Feeling abnormal [Unknown]
